FAERS Safety Report 11451451 (Version 1)
Quarter: 2015Q3

REPORT INFORMATION
  Report Type: Spontaneous
  Country: None (occurrence: None)
  Receive Date: 20150902
  Receipt Date: 20150902
  Transmission Date: 20151125
  Serious: No
  Sender: FDA-Public Use
  Company Number: None

PATIENT
  Age: 70 Year
  Sex: Male
  Weight: 99.79 kg

DRUGS (2)
  1. TRULICITY [Suspect]
     Active Substance: DULAGLUTIDE
     Indication: BLOOD GLUCOSE
     Dosage: ABDOMEN INJECTION POINT
     Dates: start: 20150824, end: 20150831
  2. TRULICITY [Suspect]
     Active Substance: DULAGLUTIDE
     Indication: TYPE 2 DIABETES MELLITUS
     Dosage: ABDOMEN INJECTION POINT
     Dates: start: 20150824, end: 20150831

REACTIONS (5)
  - Nausea [None]
  - Decreased appetite [None]
  - Abdominal pain upper [None]
  - Diarrhoea [None]
  - Dyspepsia [None]

NARRATIVE: CASE EVENT DATE: 20150901
